FAERS Safety Report 6577611-0 (Version None)
Quarter: 2010Q1

REPORT INFORMATION
  Report Type: 
  Country: None (occurrence: None)
  Receive Date: 20100211
  Receipt Date: 20100129
  Transmission Date: 20100710
  Serious: Yes (Hospitalization, Other)
  Sender: FDA-Public Use
  Company Number: PHHY2010JP05312

PATIENT
  Sex: Female

DRUGS (8)
  1. ICL670A ICL+DISTAB [Suspect]
     Indication: IRON OVERLOAD
     Dosage: 500 MG, DAILY
     Route: 048
     Dates: start: 20090625, end: 20090708
  2. NEORAL [Suspect]
     Indication: APLASIA PURE RED CELL
     Dosage: 350 MG, DAILY
     Route: 048
     Dates: start: 20090625, end: 20090902
  3. NEORAL [Suspect]
     Dosage: 300 MG, DAILY
     Route: 048
     Dates: start: 20090903, end: 20090916
  4. NEORAL [Suspect]
     Dosage: 250 MG, DAILY
     Route: 048
     Dates: start: 20090917, end: 20091110
  5. NEORAL [Suspect]
     Dosage: 200 MG, DAILY
     Route: 048
     Dates: start: 20091111, end: 20091223
  6. NEORAL [Suspect]
     Dosage: 250 MG, DAILY
     Route: 048
     Dates: start: 20091224
  7. DESFERAL [Concomitant]
     Indication: IRON OVERLOAD
     Dosage: 500 MG, UNK
     Route: 030
     Dates: start: 20090305, end: 20090617
  8. RED CELLS CONCENTRATES-LEUKOCYTES REDUCED (RCC-LR) [Concomitant]
     Dosage: 2 U, UNK
     Dates: start: 20090625, end: 20090820

REACTIONS (6)
  - BACTERIAL INFECTION [None]
  - FEELING COLD [None]
  - PYREXIA [None]
  - RENAL FAILURE ACUTE [None]
  - SERUM FERRITIN INCREASED [None]
  - WHITE BLOOD CELL COUNT INCREASED [None]
